FAERS Safety Report 4833960-5 (Version None)
Quarter: 2005Q4

REPORT INFORMATION
  Report Type: 
  Country: None (occurrence: None)
  Receive Date: 20051118
  Receipt Date: 20051118
  Transmission Date: 20060501
  Serious: Yes (Other)
  Sender: FDA-Public Use
  Company Number: None

PATIENT
  Age: 76 Year
  Sex: Male
  Weight: 118.9 kg

DRUGS (16)
  1. GATIFLOXACIN [Suspect]
  2. FUROSEMIDE [Concomitant]
  3. CARVEDILOL [Concomitant]
  4. LISINOPRIL [Concomitant]
  5. HUMULIN N [Concomitant]
  6. BACITRACIN [Concomitant]
  7. KETOCONAZOLE [Concomitant]
  8. HYPROMELLOSE [Concomitant]
  9. GABAPENTIN [Concomitant]
  10. MILD OF MAGNESIA [Concomitant]
  11. ALOH/MGOH/SIMTH XTRA STRENGTH [Concomitant]
  12. OXYCODONE [Concomitant]
  13. OMEPRAZOLE [Concomitant]
  14. NYSTATIN [Concomitant]
  15. WARFARIN SODIUM [Concomitant]
  16. PAPAIN 830000U/UREA 10% ACCUZYME) [Concomitant]

REACTIONS (1)
  - CONFUSIONAL STATE [None]
